FAERS Safety Report 9282113 (Version 1)
Quarter: 2013Q2

REPORT INFORMATION
  Report Type: Spontaneous
  Country: US (occurrence: None)
  Receive Date: 20130508
  Receipt Date: 20130508
  Transmission Date: 20140414
  Serious: Yes (Hospitalization)
  Sender: FDA-Public Use
  Company Number: None

PATIENT
  Age: 78 Year
  Sex: Female
  Weight: 62 kg

DRUGS (10)
  1. SIMVASTATIN [Suspect]
     Indication: HYPERLIPIDAEMIA
     Dosage: ^YEARS^ ?80MG QD PO
     Route: 048
  2. ACTOS [Concomitant]
  3. DUKTUAZEN [Concomitant]
  4. DOXAZOSIN [Concomitant]
  5. GLIPIZIDE [Concomitant]
  6. BRISOPRAZOLE [Concomitant]
  7. FUROSEMIDE [Concomitant]
  8. METOPROLOL [Concomitant]
  9. METFORMIN [Concomitant]
  10. CLOPIDOGREL [Concomitant]

REACTIONS (2)
  - Asthenia [None]
  - Rhabdomyolysis [None]
